FAERS Safety Report 7211208-4 (Version None)
Quarter: 2011Q1

REPORT INFORMATION
  Report Type: 
  Country: None (occurrence: None)
  Receive Date: 20110105
  Receipt Date: 20101229
  Transmission Date: 20110831
  Serious: Yes (Other)
  Sender: FDA-Public Use
  Company Number: US-US-EMD SERONO, INC.-7012437

PATIENT
  Sex: Female
  Weight: 63 kg

DRUGS (4)
  1. CELEXA [Suspect]
     Route: 048
     Dates: start: 20100101
  2. REBIF [Suspect]
     Indication: RELAPSING-REMITTING MULTIPLE SCLEROSIS
     Route: 058
     Dates: start: 20081206
  3. CELEXA [Suspect]
     Indication: DEPRESSION
     Route: 048
     Dates: start: 20100501, end: 20100701
  4. AMPYRA [Concomitant]
     Dates: start: 20101123

REACTIONS (10)
  - HALLUCINATION, AUDITORY [None]
  - MULTIPLE SCLEROSIS RELAPSE [None]
  - DEPRESSION [None]
  - INJECTION SITE NODULE [None]
  - INJECTION SITE ERYTHEMA [None]
  - DELUSION [None]
  - MENORRHAGIA [None]
  - INJECTION SITE PAIN [None]
  - SUICIDAL IDEATION [None]
  - HEADACHE [None]
